FAERS Safety Report 5844507-9 (Version None)
Quarter: 2008Q3

REPORT INFORMATION
  Report Type: 
  Country: None (occurrence: None)
  Receive Date: 20080812
  Receipt Date: 20080729
  Transmission Date: 20090109
  Serious: Yes (Other)
  Sender: FDA-Public Use
  Company Number: 2008US001808

PATIENT
  Age: 63 Year
  Sex: Male
  Weight: 99.8 kg

DRUGS (1)
  1. AMEVIVE [Suspect]
     Indication: PSORIASIS
     Dosage: 15 MG, INTRAMUSCULAR
     Route: 030
     Dates: start: 20041230, end: 20050325

REACTIONS (1)
  - SQUAMOUS CELL CARCINOMA [None]
